FAERS Safety Report 23393187 (Version 1)
Quarter: 2024Q1

REPORT INFORMATION
  Report Type: Spontaneous
  Country: US (occurrence: None)
  Receive Date: 20240111
  Receipt Date: 20240111
  Transmission Date: 20240409
  Serious: Yes (Hospitalization)
  Sender: FDA-Public Use
  Company Number: None

PATIENT
  Sex: Female

DRUGS (4)
  1. PROLIA [Suspect]
     Active Substance: DENOSUMAB
     Indication: Osteoporosis
     Dosage: OTHER FREQUENCY : EVERY 6 MONTHS;?
     Route: 058
     Dates: start: 202101
  2. ZOFRAN [Concomitant]
     Active Substance: ONDANSETRON HYDROCHLORIDE
  3. TYVASO DPI MAINT KIT PWD [Concomitant]
  4. OPSUMIT [Concomitant]
     Active Substance: MACITENTAN

REACTIONS (9)
  - Oedema peripheral [None]
  - Headache [None]
  - Cough [None]
  - Nausea [None]
  - Dyspnoea exertional [None]
  - Fatigue [None]
  - Blood sodium decreased [None]
  - Blood magnesium decreased [None]
  - Blood pressure fluctuation [None]
